FAERS Safety Report 6595648-2 (Version None)
Quarter: 2010Q1

REPORT INFORMATION
  Report Type: 
  Country: None (occurrence: None)
  Receive Date: 20100223
  Receipt Date: 20100211
  Transmission Date: 20100710
  Serious: Yes (Other)
  Sender: FDA-Public Use
  Company Number: GB-GENZYME-THYM-1001367

PATIENT

DRUGS (1)
  1. THYMOGLOBULIN [Suspect]
     Indication: PROPHYLAXIS AGAINST TRANSPLANT REJECTION

REACTIONS (3)
  - BLOOD PRESSURE FLUCTUATION [None]
  - CHILLS [None]
  - PLATELET DISORDER [None]
